FAERS Safety Report 7703819-4 (Version None)
Quarter: 2011Q3

REPORT INFORMATION
  Report Type: 
  Country: None (occurrence: None)
  Receive Date: 20110823
  Receipt Date: 20110819
  Transmission Date: 20111222
  Serious: Yes (Other)
  Sender: FDA-Public Use
  Company Number: GB-ROCHE-788404

PATIENT
  Age: 61 Year
  Sex: Female

DRUGS (11)
  1. AMITRIPTYLINE HCL [Suspect]
     Route: 065
  2. OXYBUTYNIN [Concomitant]
  3. ACETAMINOPHEN [Suspect]
     Dosage: 8 DOSE FORM DAILY
     Route: 065
  4. SERETIDE [Concomitant]
     Dosage: DOSE: 500/50
  5. DICLOFENAC SODIUM [Concomitant]
  6. CITALOPRAM HYDROBROMIDE [Concomitant]
  7. LANSOPRAZOLE [Concomitant]
  8. VENTOLIN HFA [Concomitant]
  9. NAPROXEN [Suspect]
     Route: 065
  10. MISOPROSTOL [Suspect]
     Route: 065
  11. TRAMADOL HCL [Suspect]
     Dosage: 8 DOSE FORM DAILY
     Route: 065

REACTIONS (7)
  - OSTEOARTHRITIS [None]
  - PAIN [None]
  - ASTHMA [None]
  - SWELLING [None]
  - RHEUMATOID ARTHRITIS [None]
  - IDIOPATHIC THROMBOCYTOPENIC PURPURA [None]
  - MUSCULOSKELETAL STIFFNESS [None]
